FAERS Safety Report 25830260 (Version 1)
Quarter: 2025Q3

REPORT INFORMATION
  Report Type: Report from Study
  Country: EU (occurrence: EU)
  Receive Date: 20250922
  Receipt Date: 20250922
  Transmission Date: 20251020
  Serious: Yes (Other)
  Sender: AUROBINDO
  Company Number: EU-EMA-DD-20250908-7482707-071939

PATIENT
  Age: 76 Year
  Sex: Female

DRUGS (2)
  1. FLUCONAZOLE [Interacting]
     Active Substance: FLUCONAZOLE
     Indication: Product used for unknown indication
     Route: 065
  2. ZOPICLONE [Interacting]
     Active Substance: ZOPICLONE
     Indication: Product used for unknown indication
     Route: 065

REACTIONS (3)
  - Drug interaction [Unknown]
  - Respiratory depression [Unknown]
  - Somnolence [Unknown]
